FAERS Safety Report 26181602 (Version 1)
Quarter: 2025Q4

REPORT INFORMATION
  Report Type: Spontaneous
  Country: US (occurrence: US)
  Receive Date: 20251221
  Receipt Date: 20251221
  Transmission Date: 20260117
  Serious: Yes (Death, Other)
  Sender: IOVANCE BIOTHERAPEUTICS
  Company Number: US-IOVANCE BIOTHERAPEUTICS, INC-2025IOV000203

PATIENT
  Sex: Male

DRUGS (4)
  1. AMTAGVI [Suspect]
     Active Substance: LIFILEUCEL
     Dosage: 7.5-72X10^9, 3 BAGS
     Dates: start: 20251010, end: 20251010
  2. CYCLOPHOSPHAMIDE [Suspect]
     Active Substance: CYCLOPHOSPHAMIDE
     Indication: Lymphodepletion
     Dosage: 5,220MG
     Dates: start: 20250930, end: 20250930
  3. CYCLOPHOSPHAMIDE [Suspect]
     Active Substance: CYCLOPHOSPHAMIDE
     Dosage: 5,220MG
     Dates: start: 20251001, end: 20251001
  4. FLUDARABINE [Suspect]
     Active Substance: FLUDARABINE PHOSPHATE
     Indication: Lymphodepletion
     Dosage: 52MG
     Dates: start: 20251002, end: 20251006

REACTIONS (3)
  - Septic shock [Fatal]
  - Pneumonia [Unknown]
  - Cellulitis [Unknown]

NARRATIVE: CASE EVENT DATE: 20250101
